FAERS Safety Report 4268066-X (Version None)
Quarter: 2004Q1

REPORT INFORMATION
  Report Type: 
  Country: None (occurrence: None)
  Receive Date: 20040109
  Receipt Date: 20040109
  Transmission Date: 20041129
  Serious: Yes (Death)
  Sender: FDA-Public Use
  Company Number: None

PATIENT
  Age: 16 Year
  Sex: Male
  Weight: 58.9676 kg

DRUGS (3)
  1. CELEXA [Suspect]
     Dosage: ONE TAB/DA
     Dates: start: 20030912, end: 20030928
  2. ADDERALL 10 [Concomitant]
  3. PROVENTIL [Concomitant]

REACTIONS (1)
  - COMPLETED SUICIDE [None]
